FAERS Safety Report 4582430-0 (Version None)
Quarter: 2005Q1

REPORT INFORMATION
  Report Type: 
  Country: None (occurrence: None)
  Receive Date: 20050127
  Receipt Date: 20040922
  Transmission Date: 20050727
  Serious: No
  Sender: FDA-Public Use
  Company Number: USA040979055

PATIENT
  Age: 43 Year
  Sex: Male

DRUGS (3)
  1. STRATTERA [Suspect]
     Indication: ATTENTION DEFICIT/HYPERACTIVITY DISORDER
     Dosage: 40 MG DAY
     Dates: start: 20040918
  2. ASACOL [Concomitant]
  3. ZOLOFT [Concomitant]

REACTIONS (4)
  - DYSURIA [None]
  - FATIGUE [None]
  - NAUSEA [None]
  - VISION BLURRED [None]
